FAERS Safety Report 6930534-7 (Version None)
Quarter: 2010Q3

REPORT INFORMATION
  Report Type: 
  Country: None (occurrence: None)
  Receive Date: 20100818
  Receipt Date: 20100811
  Transmission Date: 20110219
  Serious: Yes (Hospitalization)
  Sender: FDA-Public Use
  Company Number: A0875002A

PATIENT
  Age: 31 Year
  Sex: Female

DRUGS (1)
  1. ZANTAC [Suspect]
     Indication: DYSPEPSIA
     Route: 065
     Dates: start: 20091101

REACTIONS (4)
  - CHOLECYSTECTOMY [None]
  - DRUG EXPOSURE DURING PREGNANCY [None]
  - PAIN [None]
  - PANCREATITIS [None]
